FAERS Safety Report 16653512 (Version 1)
Quarter: 2019Q3

REPORT INFORMATION
  Report Type: Report from Study
  Country: US (occurrence: US)
  Receive Date: 20190731
  Receipt Date: 20190731
  Transmission Date: 20191004
  Serious: Yes (Death, Other)
  Sender: FDA-Public Use
  Company Number: US-GILEAD-2019-0421189

PATIENT
  Age: 72 Year
  Sex: Female

DRUGS (10)
  1. FENTANYL. [Concomitant]
     Active Substance: FENTANYL
  2. VAGIFEM [Concomitant]
     Active Substance: ESTRADIOL
  3. ORENITRAM [Concomitant]
     Active Substance: TREPROSTINIL
  4. AMBRISENTAN [Suspect]
     Active Substance: AMBRISENTAN
     Indication: PULMONARY HYPERTENSION
     Dosage: 10 MG, QD
     Route: 065
     Dates: start: 20160919
  5. CLONAZEPAM. [Concomitant]
     Active Substance: CLONAZEPAM
  6. MONUROL [Concomitant]
     Active Substance: FOSFOMYCIN TROMETHAMINE
  7. SILDENAFIL. [Concomitant]
     Active Substance: SILDENAFIL
  8. PROCRIT [Concomitant]
     Active Substance: ERYTHROPOIETIN
  9. ZETIA [Concomitant]
     Active Substance: EZETIMIBE
  10. DULOXETINE. [Concomitant]
     Active Substance: DULOXETINE

REACTIONS (1)
  - Death [Fatal]

NARRATIVE: CASE EVENT DATE: 20190731
